FAERS Safety Report 9319258 (Version 1)
Quarter: 2013Q2

REPORT INFORMATION
  Report Type: Spontaneous
  Country: US (occurrence: None)
  Receive Date: 20130524
  Receipt Date: 20130524
  Transmission Date: 20140414
  Serious: Yes (Other)
  Sender: FDA-Public Use
  Company Number: ACO_36225_2013

PATIENT
  Age: 53 Year
  Sex: Male

DRUGS (6)
  1. AMPYRA (DALFAMPRIDINE) TABLET, 10MG [Suspect]
     Indication: GAIT DISTURBANCE
     Dates: start: 20110511
  2. AMPYRA (DALFAMPRIDINE) TABLET, 10MG [Suspect]
     Indication: MULTIPLE SCLEROSIS
     Dates: start: 20110511
  3. CYMBALTA (DULOXETINE HYDROCHLORIDE) [Concomitant]
  4. BACLOFEN (BACLOFEN) [Concomitant]
  5. LEXAPRO (ESCITALOPRAM OXALATE) [Concomitant]
  6. PROVIGIL (MODAFINIL) [Concomitant]

REACTIONS (3)
  - Abasia [None]
  - Wheelchair user [None]
  - Drug ineffective [None]
